FAERS Safety Report 5186311-3 (Version None)
Quarter: 2006Q4

REPORT INFORMATION
  Report Type: 
  Country: None (occurrence: None)
  Receive Date: 20061213
  Receipt Date: 20061212
  Transmission Date: 20070319
  Serious: Yes (Hospitalization, Other)
  Sender: FDA-Public Use
  Company Number: FRWYE771707DEC06

PATIENT
  Age: 69 Year
  Sex: Male

DRUGS (9)
  1. EFFEXOR [Suspect]
     Indication: MAJOR DEPRESSION
     Dosage: ORAL
     Route: 048
     Dates: start: 20060415
  2. SECTRAL [Concomitant]
  3. IMOVANE (ZOPICLONE) [Concomitant]
  4. ALLOPURINOL [Concomitant]
  5. ENALAPRIL MALEATE AND HYDROCHLOROTHIAZIDE [Concomitant]
  6. SIMVASTATIN [Concomitant]
  7. PREDNISONE [Concomitant]
  8. ATARAX [Concomitant]
  9. LEXOMIL (BROMAZEPAM) [Concomitant]

REACTIONS (1)
  - PEMPHIGOID [None]
